FAERS Safety Report 16562676 (Version 4)
Quarter: 2019Q3

REPORT INFORMATION
  Report Type: Spontaneous
  Country: IT (occurrence: IT)
  Receive Date: 20190711
  Receipt Date: 20190927
  Transmission Date: 20191004
  Serious: Yes (Hospitalization, Other)
  Sender: FDA-Public Use
  Company Number: IT-NOVOPROD-672086

PATIENT
  Sex: Female

DRUGS (11)
  1. DIBASE [Concomitant]
     Active Substance: CHOLECALCIFEROL
     Dosage: ONCE A MONTH
     Route: 065
  2. TACHIDOL [Concomitant]
     Active Substance: ACETAMINOPHEN\CODEINE PHOSPHATE
     Dosage: MORNING, 500 MG AFTER DINNER
     Route: 065
  3. CARDIRENE [Concomitant]
     Active Substance: ASPIRIN DL-LYSINE
     Dosage: AT LUNCH, 160 MG
     Route: 065
  4. NOVORAPID [Suspect]
     Active Substance: INSULIN ASPART
     Indication: DIABETES MELLITUS
     Dosage: UNK
     Route: 058
  5. PANTORC [Concomitant]
     Active Substance: PANTOPRAZOLE SODIUM
     Dosage: MORNING: 1 TABLET
     Route: 065
  6. REMIFEMIN [Concomitant]
     Active Substance: BLACK COHOSH
     Dosage: MORNING 1 TABLET, 1 TABLET AFTER DINNER
     Route: 065
  7. URBASON [METHYLPREDNISOLONE] [Concomitant]
     Active Substance: METHYLPREDNISOLONE
     Dosage: MORNING, 2 MG
     Route: 065
  8. NOVORAPID [Suspect]
     Active Substance: INSULIN ASPART
     Dosage: UNK
     Route: 058
  9. LYRICA [Concomitant]
     Active Substance: PREGABALIN
     Dosage: MORNING, 150 MG AFTER DINNER
     Route: 065
  10. ZETIA [Concomitant]
     Active Substance: EZETIMIBE
     Dosage: AT DINNER 100 MG
     Route: 065
  11. LAROXYL [Concomitant]
     Active Substance: AMITRIPTYLINE HYDROCHLORIDE
     Dosage: BEFORE SLEEP: 10 DROPS
     Route: 065

REACTIONS (5)
  - Syncope [Recovered/Resolved]
  - Pulse absent [Recovered/Resolved]
  - Hyperglycaemia [Recovered/Resolved]
  - Product leakage [Unknown]
  - Product physical issue [Unknown]

NARRATIVE: CASE EVENT DATE: 20190629
